FAERS Safety Report 4302420-2 (Version None)
Quarter: 2004Q1

REPORT INFORMATION
  Report Type: 
  Country: None (occurrence: None)
  Receive Date: 20040223
  Receipt Date: 20040223
  Transmission Date: 20041129
  Serious: Yes (Hospitalization)
  Sender: FDA-Public Use
  Company Number: None

PATIENT
  Age: 62 Year
  Sex: Male
  Weight: 83.9154 kg

DRUGS (4)
  1. PROCRIT 40,000 UNITS ORTHO-BIOTECH [Suspect]
     Indication: ANAEMIA
     Dosage: 40,000 WEEKLY SUBCUTANEOUS
     Route: 058
     Dates: start: 20040202, end: 20040216
  2. GEMZAR [Concomitant]
  3. FLUOROURACIL [Concomitant]
  4. . [Concomitant]

REACTIONS (3)
  - CHOLANGITIS [None]
  - HYPOTENSION [None]
  - STENT OCCLUSION [None]
